FAERS Safety Report 7430296-3 (Version None)
Quarter: 2011Q2

REPORT INFORMATION
  Report Type: 
  Country: None (occurrence: None)
  Receive Date: 20110421
  Receipt Date: 20110412
  Transmission Date: 20111010
  Serious: Yes (Other)
  Sender: FDA-Public Use
  Company Number: US-ELI_LILLY_AND_COMPANY-US201104004768

PATIENT
  Sex: Male

DRUGS (1)
  1. EFFIENT [Suspect]
     Dosage: 10 MG, UNKNOWN

REACTIONS (3)
  - GASTROINTESTINAL HAEMORRHAGE [None]
  - DRUG DOSE OMISSION [None]
  - PEPTIC ULCER [None]
